FAERS Safety Report 15732812 (Version 2)
Quarter: 2019Q3

REPORT INFORMATION
  Report Type: Spontaneous
  Country: US (occurrence: US)
  Receive Date: 20181217
  Receipt Date: 20190703
  Transmission Date: 20191004
  Serious: Yes (Other)
  Sender: FDA-Public Use
  Company Number: US-MYLANLABS-2018M1092889

PATIENT
  Sex: Female
  Weight: 66 kg

DRUGS (1)
  1. CITALOPRAM [Suspect]
     Active Substance: CITALOPRAM HYDROBROMIDE
     Indication: DEPRESSION
     Dosage: 15 MILLIGRAM
     Route: 048

REACTIONS (9)
  - Decreased appetite [Recovering/Resolving]
  - Cerebral disorder [Unknown]
  - Dementia [Recovering/Resolving]
  - Wrong technique in product usage process [Unknown]
  - Dizziness [Recovering/Resolving]
  - Fatigue [Recovering/Resolving]
  - Drug ineffective [Unknown]
  - Stroke in evolution [Not Recovered/Not Resolved]
  - Speech disorder [Not Recovered/Not Resolved]
